FAERS Safety Report 9115094 (Version 1)
Quarter: 2013Q1

REPORT INFORMATION
  Report Type: Spontaneous
  Country: JP (occurrence: JP)
  Receive Date: 20130225
  Receipt Date: 20130225
  Transmission Date: 20140127
  Serious: Yes (Disabling, Other)
  Sender: FDA-Public Use
  Company Number: PHHY2012JP106274

PATIENT
  Sex: Female

DRUGS (4)
  1. NEORAL [Suspect]
     Indication: DERMATOMYOSITIS
     Dosage: 100 MG, QD
     Route: 048
     Dates: start: 20120502, end: 20120504
  2. NEORAL [Suspect]
     Dosage: 25 MG, QD
     Route: 048
     Dates: start: 20120507
  3. PREDNISOLONE [Concomitant]
     Indication: DERMATOMYOSITIS
  4. CORTICOSTEROID NOS [Concomitant]
     Indication: DERMATOMYOSITIS

REACTIONS (3)
  - Thrombotic microangiopathy [Recovering/Resolving]
  - Platelet count decreased [Recovering/Resolving]
  - Nausea [Recovered/Resolved]
